FAERS Safety Report 9952414 (Version 1)
Quarter: 2014Q1

REPORT INFORMATION
  Report Type: Report from Study
  Country: AU (occurrence: AU)
  Receive Date: 20140304
  Receipt Date: 20140304
  Transmission Date: 20141002
  Serious: Yes (Hospitalization)
  Sender: FDA-Public Use
  Company Number: PHHY2014AU026052

PATIENT
  Sex: Male

DRUGS (1)
  1. LEPONEX / CLOZARIL [Suspect]
     Dates: start: 20130920

REACTIONS (2)
  - Fall [Unknown]
  - Fracture [Unknown]
